FAERS Safety Report 9175600 (Version 2)
Quarter: 2013Q4

REPORT INFORMATION
  Report Type: Spontaneous
  Country: US (occurrence: US)
  Receive Date: 20120915
  Receipt Date: 20131031
  Transmission Date: 20140711
  Serious: Yes (Hospitalization)
  Sender: FDA-Public Use
  Company Number: US-009507513-1209USA004035

PATIENT
  Sex: Male

DRUGS (3)
  1. ISENTRESS [Suspect]
     Dosage: 800 MG, QD
     Route: 048
  2. EMTRICITABINE [Suspect]
     Dosage: 1 DF, QD
     Route: 048
  3. GASTER D [Concomitant]
     Dosage: UNK

REACTIONS (2)
  - Pneumocystis jirovecii pneumonia [Unknown]
  - Immune reconstitution inflammatory syndrome [Unknown]
